FAERS Safety Report 23750374 (Version 1)
Quarter: 2024Q2

REPORT INFORMATION
  Report Type: Spontaneous
  Country: US (occurrence: US)
  Receive Date: 20240417
  Receipt Date: 20240417
  Transmission Date: 20240716
  Serious: No
  Sender: FDA-Public Use
  Company Number: US-BEH-2024170554

PATIENT
  Age: 9 Year
  Sex: Female

DRUGS (1)
  1. HIZENTRA [Suspect]
     Active Substance: HUMAN IMMUNOGLOBULIN G
     Indication: Blood immunoglobulin G decreased
     Dosage: 40 ML, QW
     Route: 058
     Dates: start: 2023

REACTIONS (2)
  - Hepatitis B core antibody positive [Unknown]
  - Misleading laboratory test result [Unknown]

NARRATIVE: CASE EVENT DATE: 20231001
